FAERS Safety Report 7867039-5 (Version None)
Quarter: 2011Q4

REPORT INFORMATION
  Report Type: 
  Country: None (occurrence: None)
  Receive Date: 20111028
  Receipt Date: 20111021
  Transmission Date: 20120403
  Serious: Yes (Hospitalization)
  Sender: FDA-Public Use
  Company Number: JP-JNJFOC-20111006891

PATIENT
  Sex: Male
  Weight: 53 kg

DRUGS (11)
  1. LASIX [Concomitant]
     Indication: CARDIAC FAILURE
     Route: 048
  2. TORSEMIDE [Concomitant]
     Indication: CARDIAC FAILURE
     Route: 048
  3. WARFARIN SODIUM [Interacting]
     Indication: MYOCARDIAL INFARCTION
     Route: 048
     Dates: start: 20110330
  4. WARFARIN SODIUM [Interacting]
     Route: 048
     Dates: start: 20060901
  5. PERINDOPRIL ERBUMINE [Concomitant]
     Indication: HYPERTENSION
     Route: 048
  6. ASPIRIN [Interacting]
     Route: 048
     Dates: start: 20050101
  7. MICONAZOLE [Suspect]
     Route: 049
  8. ASPIRIN [Interacting]
     Indication: MYOCARDIAL INFARCTION
     Route: 048
     Dates: start: 20110321
  9. ALLOPURINOL [Concomitant]
     Indication: HYPERURICAEMIA
     Route: 048
  10. MICONAZOLE [Suspect]
     Indication: ORAL CANDIDIASIS
     Route: 049
     Dates: start: 20110216
  11. PRAVASTATIN SODIUM [Concomitant]
     Indication: HYPERLIPIDAEMIA
     Route: 048

REACTIONS (5)
  - DRUG INTERACTION [None]
  - GASTROINTESTINAL HAEMORRHAGE [None]
  - BLEEDING TIME PROLONGED [None]
  - ANAEMIA [None]
  - INTERNATIONAL NORMALISED RATIO INCREASED [None]
